FAERS Safety Report 4317707-7 (Version None)
Quarter: 2004Q1

REPORT INFORMATION
  Report Type: 
  Country: None (occurrence: None)
  Receive Date: 20040312
  Receipt Date: 20040227
  Transmission Date: 20041129
  Serious: Yes (Hospitalization, Other)
  Sender: FDA-Public Use
  Company Number: 2004-06729

PATIENT
  Age: 30 Year
  Sex: Male
  Weight: 41 kg

DRUGS (5)
  1. VIREAD [Suspect]
     Indication: HIV INFECTION
     Dosage: 300 MG QD PO
     Route: 048
     Dates: start: 20030901, end: 20040126
  2. DIDANOSINE [Suspect]
     Indication: HIV INFECTION
     Dosage: 250 MG QD PO
     Route: 048
     Dates: start: 20030901, end: 20040126
  3. ENFUVIRTIDE [Concomitant]
  4. KALETRA [Concomitant]
  5. SAQUINAVIR [Concomitant]

REACTIONS (2)
  - RENAL IMPAIRMENT [None]
  - WEIGHT DECREASED [None]
